FAERS Safety Report 24604195 (Version 2)
Quarter: 2024Q4

REPORT INFORMATION
  Report Type: Report from Study
  Country: CA (occurrence: CA)
  Receive Date: 20241111
  Receipt Date: 20241129
  Transmission Date: 20250115
  Serious: Yes (Hospitalization, Other)
  Sender: CSL BEHRING
  Company Number: CA-BEH-2024183921

PATIENT
  Age: 65 Year
  Sex: Male
  Weight: 88 kg

DRUGS (2)
  1. HIZENTRA [Suspect]
     Active Substance: HUMAN IMMUNOGLOBULIN G
     Indication: Secondary immunodeficiency
     Dosage: 10 G, QW
     Route: 065
     Dates: start: 20240116
  2. ACALABRUTINIB [Concomitant]
     Active Substance: ACALABRUTINIB

REACTIONS (4)
  - Hospitalisation [Unknown]
  - Malignant neoplasm progression [Unknown]
  - Therapy cessation [Unknown]
  - Therapy interrupted [Unknown]
